FAERS Safety Report 16759297 (Version 1)
Quarter: 2019Q3

REPORT INFORMATION
  Report Type: Spontaneous
  Country: US (occurrence: US)
  Receive Date: 20190830
  Receipt Date: 20190830
  Transmission Date: 20191005
  Serious: No
  Sender: FDA-Public Use
  Company Number: US-ELI_LILLY_AND_COMPANY-US201908004537

PATIENT
  Sex: Male
  Weight: 86.17 kg

DRUGS (2)
  1. ASPIRIN [ACETYLSALICYLIC ACID] [Concomitant]
     Active Substance: ASPIRIN
     Indication: PRODUCT USED FOR UNKNOWN INDICATION
  2. CIALIS [Suspect]
     Active Substance: TADALAFIL
     Indication: PRODUCT USED FOR UNKNOWN INDICATION
     Dosage: UNK, UNKNOWN
     Route: 065

REACTIONS (9)
  - Ligament sprain [Unknown]
  - Back pain [Not Recovered/Not Resolved]
  - Sciatica [Unknown]
  - Paraesthesia [Unknown]
  - Muscle spasms [Not Recovered/Not Resolved]
  - Neck mass [Unknown]
  - Road traffic accident [Unknown]
  - Mobility decreased [Unknown]
  - Neck pain [Not Recovered/Not Resolved]

NARRATIVE: CASE EVENT DATE: 201008
